FAERS Safety Report 9459485 (Version 1)
Quarter: 2013Q3

REPORT INFORMATION
  Report Type: Spontaneous
  Country: US (occurrence: US)
  Receive Date: 20130815
  Receipt Date: 20130815
  Transmission Date: 20140515
  Serious: No
  Sender: FDA-Public Use
  Company Number: US-009507513-1308USA001626

PATIENT
  Sex: Male

DRUGS (2)
  1. BETAMETHASONE VALERATE [Suspect]
     Indication: DERMATITIS CONTACT
     Dosage: TWO TO THREE TIMES A DAY
  2. BETAMETHASONE VALERATE [Suspect]
     Dosage: UNK
     Dates: start: 1986

REACTIONS (1)
  - Expired drug administered [Unknown]
